FAERS Safety Report 14480247 (Version 1)
Quarter: 2018Q1

REPORT INFORMATION
  Report Type: Report from Study
  Country: US (occurrence: US)
  Receive Date: 20180202
  Receipt Date: 20180202
  Transmission Date: 20180509
  Serious: No
  Sender: FDA-Public Use
  Company Number: US-TAKEDA-2016US006098

PATIENT
  Sex: Female

DRUGS (3)
  1. PONATINIB [Suspect]
     Active Substance: PONATINIB
     Indication: CHRONIC MYELOID LEUKAEMIA
     Dosage: 30 MG, QD
     Route: 048
     Dates: start: 20160120
  2. PONATINIB [Suspect]
     Active Substance: PONATINIB
     Dosage: UNK
     Route: 048
  3. PONATINIB [Suspect]
     Active Substance: PONATINIB
     Dosage: 30 MG, QD
     Route: 048

REACTIONS (23)
  - Lymphadenopathy [Unknown]
  - Joint stiffness [Unknown]
  - Pain [Unknown]
  - Asthenia [Unknown]
  - Cough [Unknown]
  - Nasal congestion [Unknown]
  - Yellow skin [Unknown]
  - Nausea [Unknown]
  - Headache [Not Recovered/Not Resolved]
  - Dyspnoea [Unknown]
  - Decreased appetite [Unknown]
  - Vision blurred [Unknown]
  - Change of bowel habit [Unknown]
  - Lymph node pain [Unknown]
  - Blood glucose increased [Unknown]
  - Fatigue [Not Recovered/Not Resolved]
  - Chest pain [Unknown]
  - Vertigo [Unknown]
  - Pruritus [Not Recovered/Not Resolved]
  - Musculoskeletal discomfort [Unknown]
  - Joint range of motion decreased [Unknown]
  - Sleep disorder [Unknown]
  - Muscle spasms [Unknown]
